FAERS Safety Report 4537728-9 (Version None)
Quarter: 2004Q4

REPORT INFORMATION
  Report Type: 
  Country: None (occurrence: None)
  Receive Date: 20041224
  Receipt Date: 20041117
  Transmission Date: 20050328
  Serious: Yes (Hospitalization)
  Sender: FDA-Public Use
  Company Number: JP-MERCK-0411USA03466

PATIENT
  Age: 51 Year
  Sex: Female

DRUGS (5)
  1. PEPCID RPD [Suspect]
     Indication: GASTRITIS
     Route: 048
     Dates: start: 20041007, end: 20041022
  2. ALFAROL [Concomitant]
     Indication: OSTEOPOROSIS
     Route: 048
     Dates: start: 20041008, end: 20041022
  3. OSTEN [Suspect]
     Indication: VOGT-KOYANAGI-HARADA SYNDROME
     Route: 048
     Dates: start: 20041014, end: 20041022
  4. RISEDRONATE SODIUM [Concomitant]
     Indication: OSTEOPOROSIS
     Route: 048
     Dates: start: 20041012, end: 20041022
  5. PREDNISOLONE [Suspect]
     Indication: VOGT-KOYANAGI-HARADA SYNDROME
     Route: 048
     Dates: start: 20041007, end: 20041022

REACTIONS (1)
  - ERYTHEMA MULTIFORME [None]
